FAERS Safety Report 15058921 (Version 1)
Quarter: 2018Q2

REPORT INFORMATION
  Report Type: Spontaneous
  Country: CR (occurrence: CR)
  Receive Date: 20180625
  Receipt Date: 20180625
  Transmission Date: 20180711
  Serious: Yes (Life-Threatening, Hospitalization, Disabling, Other)
  Sender: FDA-Public Use
  Company Number: CR-GLAXOSMITHKLINE-CR2018GSK112364

PATIENT

DRUGS (1)
  1. LAMICTAL [Suspect]
     Active Substance: LAMOTRIGINE
     Indication: PRODUCT USED FOR UNKNOWN INDICATION
     Dosage: UNK
     Route: 065

REACTIONS (6)
  - Cholestasis [Unknown]
  - Hepatic enzyme increased [Unknown]
  - Oral mucosal eruption [Unknown]
  - Lymphadenopathy [Unknown]
  - Pyrexia [Unknown]
  - Oedema mouth [Unknown]
